FAERS Safety Report 13972448 (Version 1)
Quarter: 2017Q3

REPORT INFORMATION
  Report Type: Spontaneous
  Country: US (occurrence: US)
  Receive Date: 20170914
  Receipt Date: 20170914
  Transmission Date: 20171128
  Serious: No
  Sender: FDA-Public Use
  Company Number: US-ASTELLAS-2017US000046

PATIENT
  Sex: Male

DRUGS (4)
  1. TAXOTERE [Suspect]
     Active Substance: DOCETAXEL
     Indication: PRODUCT USED FOR UNKNOWN INDICATION
     Dosage: UNK UNK, UNKNOWN FREQ.
     Route: 042
  2. XTANDI [Suspect]
     Active Substance: ENZALUTAMIDE
     Route: 048
     Dates: start: 20161226
  3. CLARITIN [Concomitant]
     Active Substance: LORATADINE
     Indication: PRODUCT USED FOR UNKNOWN INDICATION
     Dosage: UNK UNK, UNKNOWN FREQ.
     Route: 065
  4. XTANDI [Suspect]
     Active Substance: ENZALUTAMIDE
     Indication: PROSTATE CANCER
     Route: 048
     Dates: start: 20161206

REACTIONS (15)
  - Alopecia [Unknown]
  - Weight increased [Unknown]
  - Weight decreased [Unknown]
  - Contusion [Unknown]
  - Paraesthesia [Unknown]
  - Oedema peripheral [Unknown]
  - Anxiety [Unknown]
  - Pigmentation disorder [Unknown]
  - Nail bed bleeding [Unknown]
  - Arthralgia [Unknown]
  - Fatigue [Unknown]
  - Hot flush [Unknown]
  - Joint swelling [Unknown]
  - Peripheral swelling [Unknown]
  - Pruritus [Unknown]
